FAERS Safety Report 26090319 (Version 1)
Quarter: 2025Q4

REPORT INFORMATION
  Report Type: Spontaneous
  Country: EU (occurrence: EU)
  Receive Date: 20251126
  Receipt Date: 20251126
  Transmission Date: 20260117
  Serious: Yes (Other)
  Sender: STRIDES
  Company Number: EU-STRIDES ARCOLAB LIMITED-2025SP014511

PATIENT
  Age: 50 Year
  Sex: Female

DRUGS (4)
  1. AMPICILLIN TRIHYDRATE [Suspect]
     Active Substance: AMPICILLIN TRIHYDRATE
     Indication: Tooth abscess
     Dosage: UNK
     Route: 065
     Dates: start: 202303
  2. AMOXICILLIN\CLAVULANIC ACID [Suspect]
     Active Substance: AMOXICILLIN\CLAVULANIC ACID
     Indication: Tooth abscess
     Dosage: UNK
     Route: 065
     Dates: start: 202303
  3. PENICILLIN G [Suspect]
     Active Substance: PENICILLIN G
     Indication: Tooth abscess
     Dosage: UNK
     Route: 065
     Dates: start: 202303
  4. PENICILLIN V [Suspect]
     Active Substance: PENICILLIN V
     Indication: Tooth abscess
     Dosage: UNK
     Route: 065
     Dates: start: 202303

REACTIONS (4)
  - Angioedema [Recovering/Resolving]
  - Drug hypersensitivity [Recovering/Resolving]
  - Blood immunoglobulin E increased [Recovering/Resolving]
  - Rash maculo-papular [Recovering/Resolving]

NARRATIVE: CASE EVENT DATE: 20230101
